FAERS Safety Report 16209717 (Version 1)
Quarter: 2019Q2

REPORT INFORMATION
  Report Type: Spontaneous
  Country: FR (occurrence: FR)
  Receive Date: 20190417
  Receipt Date: 20190417
  Transmission Date: 20190711
  Serious: Yes (Other)
  Sender: FDA-Public Use
  Company Number: FR-PFIZER INC-2019161094

PATIENT
  Age: 17 Year
  Sex: Female

DRUGS (5)
  1. PARACETAMOL [Suspect]
     Active Substance: ACETAMINOPHEN
     Dosage: 5 DF, SINGLE
     Route: 048
     Dates: start: 20170112, end: 20170112
  2. ALPRAZOLAM. [Suspect]
     Active Substance: ALPRAZOLAM
     Dosage: 6 DF, SINGLE
     Route: 048
     Dates: start: 20170112, end: 20170112
  3. TRAMADOL HCL [Suspect]
     Active Substance: TRAMADOL HYDROCHLORIDE
     Dosage: 2 DF, SINGLE
     Route: 048
     Dates: start: 20170112, end: 20170112
  4. LYSANXIA [Suspect]
     Active Substance: PRAZEPAM
     Dosage: 5 DF, SINGLE
     Route: 048
     Dates: start: 20170112, end: 20170112
  5. TRANXENE [Suspect]
     Active Substance: CLORAZEPATE DIPOTASSIUM
     Dosage: 15 DF, SINGLE
     Route: 048
     Dates: start: 20170112, end: 20170112

REACTIONS (5)
  - Psychomotor skills impaired [Recovered/Resolved]
  - Suicide attempt [Unknown]
  - Intentional overdose [Unknown]
  - Tachycardia [Recovered/Resolved]
  - Toxicity to various agents [Recovered/Resolved]

NARRATIVE: CASE EVENT DATE: 20170112
